FAERS Safety Report 17742926 (Version 3)
Quarter: 2020Q2

REPORT INFORMATION
  Report Type: Spontaneous
  Country: FR (occurrence: FR)
  Receive Date: 20200504
  Receipt Date: 20200626
  Transmission Date: 20200714
  Serious: Yes (Other)
  Sender: FDA-Public Use
  Company Number: NVSC2020FR119453

PATIENT
  Age: 86 Year
  Sex: Male

DRUGS (3)
  1. PREDNISONE. [Suspect]
     Active Substance: PREDNISONE
     Indication: CENTRAL NERVOUS SYSTEM LESION
  2. NIVOLUMAB [Concomitant]
     Active Substance: NIVOLUMAB
     Indication: IMMUNOCHEMOTHERAPY
     Dosage: UNK
     Route: 065
  3. PREDNISONE. [Suspect]
     Active Substance: PREDNISONE
     Indication: METASTATIC MALIGNANT MELANOMA
     Dosage: 1 MG/KG
     Route: 065

REACTIONS (6)
  - Erythema [Recovering/Resolving]
  - Product use in unapproved indication [Unknown]
  - Scedosporium infection [Recovering/Resolving]
  - Papule [Recovering/Resolving]
  - Purulent discharge [Recovering/Resolving]
  - Fungal skin infection [Recovered/Resolved]
